FAERS Safety Report 10524498 (Version 1)
Quarter: 2014Q4

REPORT INFORMATION
  Report Type: Spontaneous
  Country: US (occurrence: None)
  Receive Date: 20141015
  Receipt Date: 20141015
  Transmission Date: 20150528
  Serious: Yes (Hospitalization)
  Sender: FDA-Public Use
  Company Number: None

PATIENT
  Age: 80 Year
  Sex: Male

DRUGS (3)
  1. FOSINOPRIL [Suspect]
     Active Substance: FOSINOPRIL
     Indication: HYPERTENSION
     Route: 048
  2. FOSINOPRIL [Suspect]
     Active Substance: FOSINOPRIL
     Indication: ATRIAL FLUTTER
     Route: 048
  3. GEMFIBROZIL. [Suspect]
     Active Substance: GEMFIBROZIL
     Indication: HYPERLIPIDAEMIA
     Route: 048
     Dates: start: 20070719

REACTIONS (2)
  - Pancreatitis necrotising [None]
  - Hypertensive crisis [None]

NARRATIVE: CASE EVENT DATE: 20131220
